FAERS Safety Report 13510567 (Version 1)
Quarter: 2017Q2

REPORT INFORMATION
  Report Type: Spontaneous
  Country: US (occurrence: US)
  Receive Date: 20170503
  Receipt Date: 20170503
  Transmission Date: 20170830
  Serious: Yes (Other)
  Sender: FDA-Public Use
  Company Number: US-BAYER-2017-077594

PATIENT
  Age: 29 Year
  Sex: Female

DRUGS (2)
  1. YAZ [Suspect]
     Active Substance: DROSPIRENONE\ETHINYL ESTRADIOL
     Dosage: UNK
     Route: 048
     Dates: start: 2008
  2. BEYAZ [Suspect]
     Active Substance: DROSPIRENONE\ETHINYL ESTRADIOL\LEVOMEFOLATE CALCIUM
     Dosage: UNK
     Route: 048
     Dates: end: 2013

REACTIONS (12)
  - Impaired quality of life [None]
  - Drug hypersensitivity [None]
  - Skin discolouration [None]
  - Skin disorder [None]
  - Eczema [None]
  - Scar [None]
  - Social anxiety disorder [None]
  - Drug use disorder [None]
  - Pruritus generalised [Recovering/Resolving]
  - Neurodermatitis [None]
  - Impaired work ability [None]
  - Crying [None]

NARRATIVE: CASE EVENT DATE: 2008
